FAERS Safety Report 6193997-3 (Version None)
Quarter: 2009Q2

REPORT INFORMATION
  Report Type: 
  Country: None (occurrence: None)
  Receive Date: 20090518
  Receipt Date: 20090513
  Transmission Date: 20091009
  Serious: Yes (Life-Threatening, Hospitalization)
  Sender: FDA-Public Use
  Company Number: PHEH2009US04863

PATIENT
  Age: 92 Year
  Sex: Male
  Weight: 69.841 kg

DRUGS (10)
  1. EXELON [Suspect]
     Indication: DEMENTIA ALZHEIMER'S TYPE
     Dosage: 4.6 MG EVERY 24HRS
     Route: 062
     Dates: start: 20090424, end: 20090429
  2. EXELON [Suspect]
     Indication: DEMENTIA
  3. NORVASC [Concomitant]
     Dosage: 10 MG, UNK
  4. OMEPRAZOLE [Concomitant]
     Dosage: 20 MG, UNK
  5. COUMADIN [Concomitant]
     Dosage: 2.5-5MG
  6. ASCORBIC ACID [Concomitant]
  7. CALCIUM [Concomitant]
  8. GLUCOSAMINE [Concomitant]
  9. TOPROL-XL [Concomitant]
     Dosage: 25 MG, UNK
  10. ALLOPURINOL [Concomitant]
     Dosage: 300 MG, UNK

REACTIONS (2)
  - ATRIAL FIBRILLATION [None]
  - CARDIAC FAILURE CONGESTIVE [None]
